FAERS Safety Report 5368318-6 (Version None)
Quarter: 2007Q2

REPORT INFORMATION
  Report Type: 
  Country: None (occurrence: None)
  Receive Date: 20070625
  Receipt Date: 20070615
  Transmission Date: 20071010
  Serious: Yes (Death)
  Sender: FDA-Public Use
  Company Number: CH-AMGEN-US208091

PATIENT
  Sex: Female

DRUGS (4)
  1. ENBREL [Suspect]
     Route: 064
     Dates: start: 20050901, end: 20060316
  2. NOZINAN [Suspect]
     Route: 064
     Dates: start: 20060508, end: 20060724
  3. TRUXAL [Suspect]
     Indication: ANXIETY
     Route: 064
     Dates: start: 20060504, end: 20060508
  4. TRUXAL [Suspect]
     Dosage: 15 MG EVERY 1 PRN
     Route: 064
     Dates: start: 20060725

REACTIONS (5)
  - ABORTION INDUCED [None]
  - CONGENITAL HYDROCEPHALUS [None]
  - DRUG EXPOSURE BEFORE PREGNANCY [None]
  - FOETAL MALFORMATION [None]
  - HAEMORRHAGE FOETAL [None]
